FAERS Safety Report 8890673 (Version 2)
Quarter: 2013Q1

REPORT INFORMATION
  Report Type: Report from Study
  Country: JP (occurrence: JP)
  Receive Date: 20121107
  Receipt Date: 20130319
  Transmission Date: 20140127
  Serious: Yes (Other)
  Sender: FDA-Public Use
  Company Number: JP-VERTEX PHARMACEUTICAL INC.-2012-024089

PATIENT
  Age: 63 Year
  Sex: Female

DRUGS (16)
  1. VX-950 (TELAPREVIR) [Suspect]
     Indication: CHRONIC HEPATITIS C
     Dosage: 1500 MG, QD
     Route: 048
     Dates: start: 20120502, end: 20120601
  2. VX-950 (TELAPREVIR) [Suspect]
     Dosage: 1250 MG, QD
     Route: 048
     Dates: start: 20120602, end: 20120629
  3. VX-950 (TELAPREVIR) [Suspect]
     Dosage: 1000 MG, QD
     Route: 048
     Dates: start: 20120630, end: 20120719
  4. VX-950 (TELAPREVIR) [Suspect]
     Dosage: 500 MG, QD
     Route: 048
     Dates: start: 20120720, end: 20120727
  5. RIBAVIRIN [Suspect]
     Indication: CHRONIC HEPATITIS C
     Dosage: 600 MG, QD
     Route: 048
     Dates: start: 20120502, end: 20120525
  6. RIBAVIRIN [Suspect]
     Dosage: 400 MG, QD
     Route: 048
     Dates: start: 20120526, end: 20120817
  7. RIBAVIRIN [Suspect]
     Dosage: 400 MG FOR 4 DAYS/QW AND 200 MG FOR 3 DAYS/QW
     Route: 048
     Dates: start: 20120818, end: 20120921
  8. RIBAVIRIN [Suspect]
     Dosage: 400 MG, QD
     Route: 048
     Dates: start: 20120922
  9. RIBAVIRIN [Suspect]
     Dosage: UNK
  10. PEGINTRON [Suspect]
     Indication: CHRONIC HEPATITIS C
     Dosage: 1.5 ?G/KG, QW
     Route: 058
     Dates: start: 20120502, end: 20120727
  11. PEGINTRON [Suspect]
     Dosage: 1.2 ?G/KG, QW
     Route: 058
     Dates: start: 20120803
  12. ALOSITOL [Concomitant]
     Dosage: 200 MG, QD
     Route: 048
     Dates: start: 20120510
  13. ALOSITOL [Concomitant]
     Dosage: 100 MG, QD
     Route: 048
     Dates: start: 20120518, end: 20120727
  14. GASLON N [Concomitant]
     Dosage: 2 MG, QD
     Route: 048
  15. GASLON N [Concomitant]
     Dosage: 4 MG, QD
     Route: 048
  16. OLMETEC [Concomitant]
     Dosage: 10 MG, QD
     Route: 048
     Dates: start: 20120501, end: 20120601

REACTIONS (1)
  - White blood cell count decreased [Recovered/Resolved]
